FAERS Safety Report 5422405-2 (Version None)
Quarter: 2007Q3

REPORT INFORMATION
  Report Type: 
  Country: None (occurrence: None)
  Receive Date: 20070822
  Receipt Date: 20070817
  Transmission Date: 20080115
  Serious: Yes (Hospitalization)
  Sender: FDA-Public Use
  Company Number: B0432213A

PATIENT
  Age: 89 Year
  Sex: Male

DRUGS (7)
  1. EPIVIR [Suspect]
     Indication: ACQUIRED IMMUNODEFICIENCY SYNDROME
     Dosage: 150MG TWICE PER DAY
     Route: 048
     Dates: start: 20000926
  2. RETROVIR [Suspect]
     Indication: ACQUIRED IMMUNODEFICIENCY SYNDROME
     Dosage: 400MG PER DAY
     Route: 048
     Dates: start: 20050602
  3. ZERIT [Suspect]
     Indication: ACQUIRED IMMUNODEFICIENCY SYNDROME
     Dosage: 80MG PER DAY
     Route: 048
     Dates: start: 20020405, end: 20050516
  4. VIRAMUNE [Suspect]
     Indication: ACQUIRED IMMUNODEFICIENCY SYNDROME
     Route: 048
     Dates: start: 20000926
  5. RENIVACE [Concomitant]
     Indication: HYPERTENSION
     Route: 048
     Dates: start: 20050401
  6. GASMOTIN [Concomitant]
     Indication: GASTRIC OPERATION
     Dosage: 5MG THREE TIMES PER DAY
     Route: 048
     Dates: start: 20050401
  7. MAGNESIUM OXIDE [Concomitant]
     Indication: GASTRIC OPERATION
     Dosage: .5MG THREE TIMES PER DAY
     Route: 048
     Dates: start: 20050401

REACTIONS (5)
  - ANOREXIA [None]
  - DEPRESSION [None]
  - INSOMNIA [None]
  - SUICIDE ATTEMPT [None]
  - WEIGHT DECREASED [None]
